FAERS Safety Report 14511056 (Version 1)
Quarter: 2018Q1

REPORT INFORMATION
  Report Type: Spontaneous
  Country: US (occurrence: US)
  Receive Date: 20180209
  Receipt Date: 20180209
  Transmission Date: 20180509
  Serious: No
  Sender: FDA-Public Use
  Company Number: US-SHIONOGI, INC-2017001415

PATIENT
  Sex: Male

DRUGS (1)
  1. SYMPROIC [Suspect]
     Active Substance: NALDEMEDINE
     Indication: CONSTIPATION
     Dosage: UNK
     Route: 065

REACTIONS (2)
  - Abdominal pain upper [Unknown]
  - Malaise [Recovered/Resolved]
